FAERS Safety Report 13618837 (Version 1)
Quarter: 2017Q2

REPORT INFORMATION
  Report Type: Spontaneous
  Country: CA (occurrence: CA)
  Receive Date: 20170606
  Receipt Date: 20170606
  Transmission Date: 20170830
  Serious: Yes (Death, Hospitalization)
  Sender: FDA-Public Use
  Company Number: CA-ACTELION-A-US2017-153726

PATIENT
  Age: 87 Year
  Sex: Female

DRUGS (4)
  1. RABEPRAZOLE [Concomitant]
     Active Substance: RABEPRAZOLE
  2. OPSUMIT [Suspect]
     Active Substance: MACITENTAN
     Indication: PULMONARY ARTERIAL HYPERTENSION
     Dosage: 10 MG, QD
     Route: 048
     Dates: start: 20160413
  3. FUROSEMIDE. [Concomitant]
     Active Substance: FUROSEMIDE
  4. ASA [Concomitant]
     Active Substance: ASPIRIN

REACTIONS (4)
  - Mobility decreased [Unknown]
  - Pulmonary arterial hypertension [Fatal]
  - Dyspnoea [Unknown]
  - Disease progression [Fatal]
